FAERS Safety Report 19603729 (Version 1)
Quarter: 2021Q3

REPORT INFORMATION
  Report Type: Spontaneous
  Country: US (occurrence: US)
  Receive Date: 20210723
  Receipt Date: 20210723
  Transmission Date: 20211014
  Serious: Yes (Hospitalization, Other)
  Sender: FDA-Public Use
  Company Number: US-UNITED THERAPEUTICS-UNT-2021-011449

PATIENT
  Age: 59 Year
  Sex: Female

DRUGS (3)
  1. REMODULIN [Suspect]
     Active Substance: TREPROSTINIL
     Indication: PULMONARY ARTERIAL HYPERTENSION
     Dosage: UNK, CONTINUING
     Route: 058
     Dates: start: 20200903, end: 202009
  2. REMODULIN [Suspect]
     Active Substance: TREPROSTINIL
     Dosage: 0.0802 ?G/KG, CONTINUING
     Route: 058
     Dates: start: 20200910
  3. REMODULIN [Suspect]
     Active Substance: TREPROSTINIL
     Dosage: 0.1357 ?G/KG, CONTINUING
     Route: 058

REACTIONS (4)
  - Hypotension [Unknown]
  - Dyspnoea [Unknown]
  - Lethargy [Unknown]
  - Rectal haemorrhage [Unknown]

NARRATIVE: CASE EVENT DATE: 20210616
